FAERS Safety Report 9854474 (Version 3)
Quarter: 2014Q2

REPORT INFORMATION
  Report Type: Spontaneous
  Country: US (occurrence: US)
  Receive Date: 20140130
  Receipt Date: 20140508
  Transmission Date: 20141212
  Serious: No
  Sender: FDA-Public Use
  Company Number: US-BIOGENIDEC-2014BI006599

PATIENT
  Age: 28 Year
  Sex: Male

DRUGS (2)
  1. TECFIDERA [Suspect]
     Indication: MULTIPLE SCLEROSIS
     Route: 048
     Dates: start: 20131114, end: 2014
  2. TYSABRI [Concomitant]
     Indication: MULTIPLE SCLEROSIS
     Route: 042
     Dates: start: 20140130

REACTIONS (6)
  - Drug ineffective [Unknown]
  - Sinus disorder [Not Recovered/Not Resolved]
  - Sinus headache [Recovered/Resolved]
  - Blindness unilateral [Not Recovered/Not Resolved]
  - Blindness [Recovered/Resolved]
  - Multiple sclerosis relapse [Recovered/Resolved]
